FAERS Safety Report 20790016 (Version 1)
Quarter: 2022Q2

REPORT INFORMATION
  Report Type: Spontaneous
  Country: US (occurrence: US)
  Receive Date: 20220505
  Receipt Date: 20220505
  Transmission Date: 20220720
  Serious: No
  Sender: FDA-Public Use
  Company Number: US-BAUSCH-BL-2022-010345

PATIENT
  Age: 65 Year
  Sex: Female

DRUGS (1)
  1. EYE ALLERGY RELIEF [Suspect]
     Active Substance: NAPHAZOLINE HYDROCHLORIDE\PHENIRAMINE MALEATE
     Indication: Hypersensitivity
     Dosage: AS DIRECTED
     Route: 047
     Dates: start: 20220425

REACTIONS (3)
  - Mydriasis [Unknown]
  - Visual impairment [Unknown]
  - Drug ineffective [Unknown]
